FAERS Safety Report 6512830-0 (Version None)
Quarter: 2009Q4

REPORT INFORMATION
  Report Type: 
  Country: None (occurrence: None)
  Receive Date: 20091217
  Receipt Date: 20091208
  Transmission Date: 20100525
  Serious: Yes (Death, Disabling)
  Sender: FDA-Public Use
  Company Number: OSCN-PR-0912L-0523

PATIENT
  Age: 71 Year
  Sex: Male

DRUGS (1)
  1. OMNISCAN [Suspect]
     Indication: DRUG USE FOR UNKNOWN INDICATION
     Dosage: 116 ML CUMULATIVE, 4 ADMINISTRATIONS OVER 17 MONTHS

REACTIONS (2)
  - ANAPHYLACTIC REACTION [None]
  - NEPHROGENIC SYSTEMIC FIBROSIS [None]
